FAERS Safety Report 4860726-2 (Version None)
Quarter: 2005Q4

REPORT INFORMATION
  Report Type: 
  Country: None (occurrence: None)
  Receive Date: 20051216
  Receipt Date: 20051216
  Transmission Date: 20060501
  Serious: Yes (Other)
  Sender: FDA-Public Use
  Company Number: None

PATIENT
  Age: 49 Year
  Sex: Female
  Weight: 100 kg

DRUGS (1)
  1. THYMOGLOBULIN [Suspect]
     Indication: HEART TRANSPLANT
     Dosage: 75MG   ONCE   IV
     Route: 042
     Dates: start: 20051203, end: 20051203

REACTIONS (3)
  - INFUSION RELATED REACTION [None]
  - PYREXIA [None]
  - THERAPEUTIC RESPONSE DECREASED [None]
